FAERS Safety Report 16382827 (Version 1)
Quarter: 2019Q2

REPORT INFORMATION
  Report Type: Report from Study
  Country: US (occurrence: US)
  Receive Date: 20190603
  Receipt Date: 20190603
  Transmission Date: 20190711
  Serious: Yes (Other)
  Sender: FDA-Public Use
  Company Number: US-ROCHE-2330757

PATIENT
  Age: 74 Year
  Sex: Male
  Weight: 63.1 kg

DRUGS (2)
  1. INSULIN LIKE GROWTH FACTOR I (HUMAN) [Suspect]
     Active Substance: MECASERMIN
     Indication: MALNUTRITION
     Route: 058
  2. SOMATROPIN. [Suspect]
     Active Substance: SOMATROPIN
     Indication: MALNUTRITION
     Route: 058

REACTIONS (3)
  - Myalgia [Unknown]
  - Drug-induced liver injury [Unknown]
  - Orthostatic hypotension [Unknown]
